FAERS Safety Report 11840677 (Version 4)
Quarter: 2016Q1

REPORT INFORMATION
  Report Type: Report from Study
  Country: US (occurrence: US)
  Receive Date: 20151216
  Receipt Date: 20160318
  Transmission Date: 20160525
  Serious: Yes (Life-Threatening)
  Sender: FDA-Public Use
  Company Number: US-SA-2015SA212789

PATIENT
  Age: 68 Year
  Sex: Female

DRUGS (4)
  1. TYLENOL [Concomitant]
     Active Substance: ACETAMINOPHEN
     Indication: HEADACHE
  2. VALACICLOVIR [Concomitant]
     Active Substance: VALACYCLOVIR HYDROCHLORIDE
  3. GAS-X [Concomitant]
     Active Substance: DIMETHICONE
     Indication: FLATULENCE
  4. LEMTRADA [Suspect]
     Active Substance: ALEMTUZUMAB
     Indication: MULTIPLE SCLEROSIS
     Route: 041
     Dates: start: 20151130, end: 20151204

REACTIONS (15)
  - Dysuria [Not Recovered/Not Resolved]
  - Mental disorder [Unknown]
  - Rash erythematous [Not Recovered/Not Resolved]
  - Cystitis [Recovered/Resolved]
  - Weight increased [Unknown]
  - Cough [Not Recovered/Not Resolved]
  - Rash pruritic [Not Recovered/Not Resolved]
  - Ill-defined disorder [Unknown]
  - Weight decreased [Unknown]
  - Atrial fibrillation [Recovering/Resolving]
  - Muscle spasms [Not Recovered/Not Resolved]
  - Pollakiuria [Recovered/Resolved]
  - Insomnia [Recovered/Resolved]
  - Hypertension [Recovering/Resolving]
  - Vulvovaginal mycotic infection [Recovered/Resolved]

NARRATIVE: CASE EVENT DATE: 2015
